FAERS Safety Report 8077496-X (Version None)
Quarter: 2012Q1

REPORT INFORMATION
  Report Type: 
  Country: None (occurrence: None)
  Receive Date: 20120127
  Receipt Date: 20120125
  Transmission Date: 20120608
  Serious: Yes (Death)
  Sender: FDA-Public Use
  Company Number: VE-B.I. PHARMACEUTICALS,INC./RIDGEFIELD-2012-RA-00013RA

PATIENT
  Age: 92 Year
  Sex: Female

DRUGS (1)
  1. DABIGATRAN ETEXILATE [Suspect]
     Indication: ATRIAL FIBRILLATION
     Dosage: 110 MG
     Route: 048
     Dates: start: 20110701, end: 20111221

REACTIONS (1)
  - ISCHAEMIC STROKE [None]
